FAERS Safety Report 14317505 (Version 1)
Quarter: 2017Q4

REPORT INFORMATION
  Report Type: Spontaneous
  Country: GB (occurrence: GB)
  Receive Date: 20171222
  Receipt Date: 20171222
  Transmission Date: 20180321
  Serious: Yes (Disabling)
  Sender: FDA-Public Use
  Company Number: GB-JNJFOC-20171229328

PATIENT
  Age: 74 Year
  Sex: Female
  Weight: 72.12 kg

DRUGS (2)
  1. RASAGILINE. [Interacting]
     Active Substance: RASAGILINE
     Indication: PARKINSON^S DISEASE
     Route: 065
  2. TRAMADOL HYDROCHLORIDE. [Suspect]
     Active Substance: TRAMADOL HYDROCHLORIDE
     Indication: POSTOPERATIVE ANALGESIA
     Route: 048
     Dates: start: 201703, end: 201703

REACTIONS (3)
  - Drug interaction [Recovered/Resolved with Sequelae]
  - Contraindicated product administered [Unknown]
  - Dementia [Recovered/Resolved with Sequelae]

NARRATIVE: CASE EVENT DATE: 201703
